FAERS Safety Report 8292258 (Version 2)
Quarter: 2012Q4

REPORT INFORMATION
  Report Type: Report from Study
  Country: JP (occurrence: JP)
  Receive Date: 20111215
  Receipt Date: 20121012
  Transmission Date: 20130627
  Serious: Yes (Other)
  Sender: FDA-Public Use
  Company Number: JP-BRISTOL-MYERS SQUIBB COMPANY-15740582

PATIENT
  Age: 74 Year
  Sex: Female

DRUGS (9)
  1. IRBETAN [Suspect]
     Indication: HYPERTENSION
     Dosage: 28Nov09-16Feb11, Dose redused to 100mg;17Feb11-18Mar11
     Route: 048
     Dates: start: 20091128, end: 20110318
  2. CONIEL [Suspect]
     Indication: HYPERTENSION
     Dosage: 12mg: Unk-25Aug10,
8mg: 26Aug10-Unk.(dose reduced)
  3. LASIX [Suspect]
     Indication: HYPERTENSION
     Dosage: 20mg:Unk-01Jul10,
10mg:02Jul10-Unk.(Dose reduced)
  4. CARDENALIN [Suspect]
     Indication: HYPERTENSION
  5. ZYLORIC [Suspect]
     Indication: HYPERURICAEMIA
     Dates: start: 20100510, end: 20100826
  6. BAYASPIRIN [Concomitant]
  7. PLETAAL [Concomitant]
     Dates: end: 20110317
  8. HIRUDOID [Concomitant]
     Indication: DERMATITIS
     Dates: start: 20100607, end: 20110317
  9. DRENISON [Concomitant]
     Indication: DERMATITIS
     Dates: start: 20100614, end: 20110127

REACTIONS (3)
  - Hypotension [Recovered/Resolved]
  - Dermatitis [Recovering/Resolving]
  - Hyperuricaemia [Recovered/Resolved]
